FAERS Safety Report 4668603-7 (Version None)
Quarter: 2005Q2

REPORT INFORMATION
  Report Type: 
  Country: None (occurrence: None)
  Receive Date: 20050519
  Receipt Date: 20050512
  Transmission Date: 20051028
  Serious: Yes (Other)
  Sender: FDA-Public Use
  Company Number: 2005052109

PATIENT
  Age: 50 Year
  Sex: Male
  Weight: 74.8435 kg

DRUGS (1)
  1. LIPITOR [Suspect]
     Indication: BLOOD CHOLESTEROL INCREASED
     Dosage: 20 MG (20 MG, 1 IN 1 D), ORAL
     Route: 048
     Dates: start: 20050112, end: 20050117

REACTIONS (4)
  - DRUG INEFFECTIVE [None]
  - NEPHROTIC SYNDROME [None]
  - OEDEMA PERIPHERAL [None]
  - WEIGHT INCREASED [None]
